FAERS Safety Report 13132679 (Version 2)
Quarter: 2017Q1

REPORT INFORMATION
  Report Type: Spontaneous
  Country: GB (occurrence: GB)
  Receive Date: 20170120
  Receipt Date: 20170127
  Transmission Date: 20170428
  Serious: Yes (Other)
  Sender: FDA-Public Use
  Company Number: GB-CONCORDIA PHARMACEUTICALS INC.-GSH201701-000491

PATIENT
  Age: 17 Year
  Sex: Female

DRUGS (5)
  1. HYDROXYCHLOROQUINE [Suspect]
     Active Substance: HYDROXYCHLOROQUINE
  2. DOXYCYCLINE. [Suspect]
     Active Substance: DOXYCYCLINE
  3. MYCOPHENOLATE MOFETIL. [Suspect]
     Active Substance: MYCOPHENOLATE MOFETIL
  4. NICOTINAMIDE [Suspect]
     Active Substance: NIACINAMIDE
  5. PREDNISOLONE. [Suspect]
     Active Substance: PREDNISOLONE

REACTIONS (4)
  - Dermatitis [Unknown]
  - Hypertension [Unknown]
  - Cushingoid [Unknown]
  - Obesity [Unknown]
